FAERS Safety Report 12948611 (Version 1)
Quarter: 2016Q4

REPORT INFORMATION
  Report Type: Spontaneous
  Country: US (occurrence: US)
  Receive Date: 20161116
  Receipt Date: 20161116
  Transmission Date: 20170207
  Serious: No
  Sender: FDA-Public Use
  Company Number: US-BAYER-2016-218898

PATIENT
  Age: 30 Year
  Sex: Female

DRUGS (1)
  1. MIRENA [Suspect]
     Active Substance: LEVONORGESTREL
     Dosage: 20 MCG/24HR, CONT
     Route: 015
     Dates: start: 20160822, end: 20161005

REACTIONS (6)
  - Device issue [None]
  - Vomiting [None]
  - Dyspareunia [None]
  - Headache [None]
  - Irritability [None]
  - Nausea [None]

NARRATIVE: CASE EVENT DATE: 2016
